FAERS Safety Report 24564275 (Version 1)
Quarter: 2024Q4

REPORT INFORMATION
  Report Type: Spontaneous
  Country: US (occurrence: US)
  Receive Date: 20241030
  Receipt Date: 20241030
  Transmission Date: 20250115
  Serious: Yes (Hospitalization, Other)
  Sender: LUPIN
  Company Number: US-LUPIN PHARMACEUTICALS INC.-2024-10632

PATIENT
  Age: 81 Year
  Sex: Male

DRUGS (1)
  1. LEFLUNOMIDE [Suspect]
     Active Substance: LEFLUNOMIDE
     Indication: Rheumatoid arthritis
     Dosage: UNK, 14 MONTH BEFORE SURGERY
     Route: 065

REACTIONS (5)
  - Postoperative wound infection [Recovered/Resolved]
  - Wound dehiscence [Recovered/Resolved]
  - Serratia infection [Recovered/Resolved]
  - Wound infection pseudomonas [Recovered/Resolved]
  - Serratia infection [Recovered/Resolved]
